FAERS Safety Report 16544746 (Version 5)
Quarter: 2019Q4

REPORT INFORMATION
  Report Type: Report from Study
  Country: ZA (occurrence: ZA)
  Receive Date: 20190709
  Receipt Date: 20191018
  Transmission Date: 20200122
  Serious: Yes (Hospitalization, Other)
  Sender: FDA-Public Use
  Company Number: ZA-JNJFOC-20190630148

PATIENT
  Age: 29 Year
  Sex: Male
  Weight: 62 kg

DRUGS (30)
  1. PARA-AMINOSALICYLIC ACID [Suspect]
     Active Substance: AMINOSALICYLIC ACID
     Route: 065
     Dates: start: 20190530, end: 20190612
  2. PYRAZINAMIDE. [Suspect]
     Active Substance: PYRAZINAMIDE
     Indication: TUBERCULOSIS
     Route: 065
     Dates: start: 20190311, end: 20190414
  3. NEVIRAPINE. [Concomitant]
     Active Substance: NEVIRAPINE
     Indication: PRODUCT USED FOR UNKNOWN INDICATION
     Route: 065
     Dates: start: 201903
  4. SIRTURO [Suspect]
     Active Substance: BEDAQUILINE FUMARATE
     Dosage: 200 MG TWICE DAILY.
     Route: 048
     Dates: start: 20190530, end: 20190606
  5. DELAMANID [Suspect]
     Active Substance: DELAMANID
     Indication: TUBERCULOSIS
     Route: 048
     Dates: start: 20190504, end: 20190528
  6. NEVIRAPINE. [Suspect]
     Active Substance: NEVIRAPINE
     Indication: TUBERCULOSIS
     Route: 065
     Dates: start: 20190311, end: 20190528
  7. MEROPENEM. [Suspect]
     Active Substance: MEROPENEM
     Indication: TUBERCULOSIS
     Route: 065
  8. DELAMANID [Suspect]
     Active Substance: DELAMANID
     Route: 048
     Dates: start: 20190530, end: 20190606
  9. TERIZIDONE [Suspect]
     Active Substance: TERIZIDONE
     Indication: TUBERCULOSIS
     Route: 065
     Dates: start: 20190311, end: 20190506
  10. SIRTURO [Suspect]
     Active Substance: BEDAQUILINE FUMARATE
     Indication: TUBERCULOSIS
     Dosage: 200 MG TWICE DAILY.
     Route: 065
     Dates: start: 20190311, end: 20190528
  11. CLOFAZIMINE [Suspect]
     Active Substance: CLOFAZIMINE
     Route: 065
     Dates: start: 20190530, end: 2019
  12. ALUVIA [Concomitant]
     Active Substance: LOPINAVIR\RITONAVIR
     Route: 065
     Dates: start: 201906
  13. LAMIVUDINE. [Concomitant]
     Active Substance: LAMIVUDINE
     Indication: PRODUCT USED FOR UNKNOWN INDICATION
     Route: 065
     Dates: start: 201903
  14. PREGABALIN. [Suspect]
     Active Substance: PREGABALIN
     Indication: TUBERCULOSIS
     Route: 065
     Dates: start: 20190518, end: 20190525
  15. LINEZOLID. [Suspect]
     Active Substance: LINEZOLID
     Indication: TUBERCULOSIS
     Route: 065
     Dates: start: 20190606, end: 20190612
  16. PYRIDOXINE [Concomitant]
     Active Substance: PYRIDOXINE
     Route: 065
     Dates: start: 20190311
  17. EMTRICITABINE W/TENOFOVIR DISOPROXIL FUMARATE [Concomitant]
     Active Substance: EMTRICITABINE\TENOFOVIR DISOPROXIL
     Route: 065
     Dates: start: 20190311, end: 20190528
  18. EFAVIRENZ W/EMTRICITABINE/TENOFOVIR DISOPROXI [Concomitant]
     Active Substance: EFAVIRENZ\EMTRICITABINE\TENOFOVIR DISOPROXIL FUMARATE
     Route: 065
     Dates: start: 201901, end: 20190311
  19. CLOFAZIMINE [Suspect]
     Active Substance: CLOFAZIMINE
     Indication: TUBERCULOSIS
     Route: 065
     Dates: start: 20190311, end: 20190528
  20. PARA-AMINOSALICYLIC ACID [Suspect]
     Active Substance: AMINOSALICYLIC ACID
     Indication: TUBERCULOSIS
     Route: 065
     Dates: start: 20190506, end: 20190528
  21. PARA-AMINOSALICYLIC ACID [Suspect]
     Active Substance: AMINOSALICYLIC ACID
     Route: 065
     Dates: start: 20190530, end: 20190606
  22. AMIKACIN. [Suspect]
     Active Substance: AMIKACIN
     Indication: TUBERCULOSIS
     Route: 030
     Dates: start: 20190606
  23. SIRTURO [Suspect]
     Active Substance: BEDAQUILINE FUMARATE
     Dosage: 200 MG TWICE DAILY.
     Route: 048
     Dates: start: 20190611, end: 20190712
  24. CLOFAZIMINE [Suspect]
     Active Substance: CLOFAZIMINE
     Route: 065
     Dates: start: 20190606
  25. TERIZIDONE [Suspect]
     Active Substance: TERIZIDONE
     Route: 065
     Dates: start: 20190606
  26. TERIZIDONE [Suspect]
     Active Substance: TERIZIDONE
     Route: 065
     Dates: start: 20190719
  27. ALUVIA [Concomitant]
     Active Substance: LOPINAVIR\RITONAVIR
     Indication: PRODUCT USED FOR UNKNOWN INDICATION
     Route: 065
     Dates: start: 20190531
  28. TENOFOVIR DISOPROXIL FUMARATE. [Concomitant]
     Active Substance: TENOFOVIR DISOPROXIL FUMARATE
     Indication: PRODUCT USED FOR UNKNOWN INDICATION
     Route: 065
     Dates: start: 201903
  29. LAMIVUDINE. [Concomitant]
     Active Substance: LAMIVUDINE
     Route: 065
     Dates: start: 20190531
  30. ABACAVIR. [Concomitant]
     Active Substance: ABACAVIR

REACTIONS (6)
  - Cor pulmonale acute [Unknown]
  - Seizure [Recovered/Resolved]
  - Drug-induced liver injury [Not Recovered/Not Resolved]
  - Pneumothorax [Unknown]
  - Hyponatraemia [Unknown]
  - Respiratory distress [Unknown]

NARRATIVE: CASE EVENT DATE: 2019
